FAERS Safety Report 17486825 (Version 1)
Quarter: 2020Q1

REPORT INFORMATION
  Report Type: Report from Study
  Country: DE (occurrence: DE)
  Receive Date: 20200303
  Receipt Date: 20200303
  Transmission Date: 20200409
  Serious: Yes (Other)
  Sender: FDA-Public Use
  Company Number: DE-TEVA-2020-DE-1194095

PATIENT
  Sex: Female

DRUGS (1)
  1. COPAXONE [Suspect]
     Active Substance: GLATIRAMER ACETATE
     Indication: MULTIPLE SCLEROSIS
     Dates: start: 20180110

REACTIONS (4)
  - Fibula fracture [Unknown]
  - Tendon rupture [Unknown]
  - Fall [Unknown]
  - Eye contusion [Unknown]

NARRATIVE: CASE EVENT DATE: 2020
